FAERS Safety Report 7349546-7 (Version None)
Quarter: 2011Q1

REPORT INFORMATION
  Report Type: 
  Country: None (occurrence: None)
  Receive Date: 20110314
  Receipt Date: 20110214
  Transmission Date: 20110831
  Serious: No
  Sender: FDA-Public Use
  Company Number: US-B.I. PHARMACEUTICALS,INC./RIDGEFIELD-2010-BP-14578BP

PATIENT
  Sex: Male

DRUGS (10)
  1. ALPAGAN [Concomitant]
  2. LOPRESSOR [Concomitant]
     Dosage: 100 MG
  3. FUROSEMIDE [Concomitant]
     Dosage: 20 MG
  4. DIGOXIN [Concomitant]
     Dosage: 125 MG
  5. BECOBUTAMIDE [Concomitant]
     Dosage: 50 MG
  6. COZAAR [Concomitant]
     Dosage: 50 MG
  7. CASODEX [Concomitant]
     Dosage: 50 MG
  8. CASOPT [Concomitant]
  9. PRADAXA [Suspect]
     Indication: ATRIAL FIBRILLATION
     Dosage: 300 MG
     Route: 048
     Dates: start: 20101213, end: 20101214
  10. LEUIMALGAN [Concomitant]

REACTIONS (2)
  - URINE OUTPUT DECREASED [None]
  - HAEMATURIA [None]
